FAERS Safety Report 9838354 (Version 2)
Quarter: 2014Q2

REPORT INFORMATION
  Report Type: Spontaneous
  Country: US (occurrence: US)
  Receive Date: 20140123
  Receipt Date: 20140415
  Transmission Date: 20141212
  Serious: Yes (Other)
  Sender: FDA-Public Use
  Company Number: US-ENDO PHARMACEUTICALS INC.-LEVE20130011

PATIENT
  Sex: Female
  Weight: 4.76 kg

DRUGS (2)
  1. LEVETIRACETAM ORAL SOLUTION 100 MG/ML [Suspect]
     Indication: CONVULSION
     Route: 048
     Dates: start: 20130813
  2. PHENOBARBITAL [Concomitant]
     Indication: CONVULSION
     Route: 048
     Dates: start: 201308

REACTIONS (2)
  - Convulsion [Unknown]
  - Failure to thrive [Not Recovered/Not Resolved]
